FAERS Safety Report 17706686 (Version 2)
Quarter: 2020Q2

REPORT INFORMATION
  Report Type: Other
  Country: CA (occurrence: CA)
  Receive Date: 20200424
  Receipt Date: 20200602
  Transmission Date: 20200714
  Serious: Yes (Hospitalization, Other)
  Sender: FDA-Public Use
  Company Number: CA-VALIDUS PHARMACEUTICALS LLC-CA-2020VAL000338

PATIENT

DRUGS (4)
  1. CALCIUM CARBONATE. [Suspect]
     Active Substance: CALCIUM CARBONATE
     Indication: ALBRIGHT^S DISEASE
     Dosage: UNK
     Route: 065
  2. CALCITRIOL. [Suspect]
     Active Substance: CALCITRIOL
     Indication: PSEUDOHYPOPARATHYROIDISM
     Dosage: UNK
     Route: 065
  3. CALCITRIOL. [Suspect]
     Active Substance: CALCITRIOL
     Indication: ALBRIGHT^S DISEASE
  4. CALCIUM CARBONATE. [Suspect]
     Active Substance: CALCIUM CARBONATE
     Indication: PSEUDOHYPOPARATHYROIDISM
     Dosage: UNK
     Route: 065

REACTIONS (5)
  - Articular calcification [Recovered/Resolved]
  - Arteriosclerosis coronary artery [Recovered/Resolved]
  - Calcinosis [Recovered/Resolved]
  - Myocardial infarction [Recovered/Resolved]
  - Bone decalcification [Recovered/Resolved]
